FAERS Safety Report 24545062 (Version 6)
Quarter: 2024Q4

REPORT INFORMATION
  Report Type: Spontaneous
  Country: CA (occurrence: CA)
  Receive Date: 20241024
  Receipt Date: 20241220
  Transmission Date: 20250115
  Serious: Yes (Other)
  Sender: CELLTRION
  Company Number: CA-PFIZER INC-202400104802

PATIENT

DRUGS (10)
  1. INFLECTRA [Suspect]
     Active Substance: INFLIXIMAB-DYYB
     Indication: Colitis ulcerative
     Dosage: 5 MG/KG, 0, 2, 6, THEN EVERY 8 WEEKS (INDUCTION DOSES AT WEEK)
     Route: 042
     Dates: start: 20240410
  2. INFLECTRA [Suspect]
     Active Substance: INFLIXIMAB-DYYB
     Dosage: 5 MG/KG, 0, 2, 6, THEN EVERY 8 WEEKS (INDUCTION DOSES AT WEEK)
     Route: 042
     Dates: start: 20240423
  3. INFLECTRA [Suspect]
     Active Substance: INFLIXIMAB-DYYB
     Dosage: 10 MG/KG, DOSE OF WEEK 6 AS SOON AS POSSIBLE THEN EVERY 8 WEEKS (325MG, AFTER 3 WEEKS AND 2 DAYS)
     Route: 042
     Dates: start: 20240516
  4. INFLECTRA [Suspect]
     Active Substance: INFLIXIMAB-DYYB
     Dosage: 10 MG/KG, DOSE OF WEEK 6 AS SOON AS POSSIBLE THEN EVERY 8 WEEKS (325MG, AFTER 3 WEEKS AND 2 DAYS)
     Route: 042
     Dates: start: 20240516
  5. INFLECTRA [Suspect]
     Active Substance: INFLIXIMAB-DYYB
     Dosage: 10 MG/KG  (650 MG), EVERY 8 WEEKS (DOSE OF WEEK 6 AS SOON AS POSSIBLE THEN EVERY 8 WEEKS)
     Route: 042
     Dates: start: 20240716
  6. INFLECTRA [Suspect]
     Active Substance: INFLIXIMAB-DYYB
     Dosage: 10 MG/KG, EVERY 4 WEEKS (EVERY 1 MONTH)
     Route: 042
     Dates: start: 20240814
  7. INFLECTRA [Suspect]
     Active Substance: INFLIXIMAB-DYYB
     Dosage: 10 MG/KG, EVERY 4 WEEKS (650MG)
     Route: 042
     Dates: start: 20240917
  8. INFLECTRA [Suspect]
     Active Substance: INFLIXIMAB-DYYB
     Dosage: 10 MG/KG, EVERY 4 WEEKS (650MG)
     Route: 042
     Dates: start: 20241016
  9. INFLECTRA [Suspect]
     Active Substance: INFLIXIMAB-DYYB
     Dosage: 650 MG, (10 MG/KG), EVERY 4 WEEKS (EVERY 4 WEEKS)
     Route: 042
     Dates: start: 20241112
  10. PREDNISONE [Concomitant]
     Active Substance: PREDNISONE
     Dosage: UNK

REACTIONS (7)
  - Condition aggravated [Recovering/Resolving]
  - Treatment failure [Unknown]
  - Therapeutic product effect incomplete [Unknown]
  - Dry skin [Unknown]
  - Dizziness [Not Recovered/Not Resolved]
  - Headache [Not Recovered/Not Resolved]
  - Off label use [Unknown]

NARRATIVE: CASE EVENT DATE: 20240101
